FAERS Safety Report 7287650-2 (Version None)
Quarter: 2011Q1

REPORT INFORMATION
  Report Type: 
  Country: None (occurrence: None)
  Receive Date: 20110211
  Receipt Date: 20110131
  Transmission Date: 20110831
  Serious: Yes (Death)
  Sender: FDA-Public Use
  Company Number: JP-SANOFI-AVENTIS-2011SA007834

PATIENT
  Sex: Male

DRUGS (4)
  1. ARICEPT [Concomitant]
     Route: 065
  2. BROTIZOLAM [Concomitant]
     Route: 065
  3. DEPAS [Concomitant]
     Route: 065
  4. MYSLEE [Suspect]
     Route: 048

REACTIONS (1)
  - RESPIRATORY DEPRESSION [None]
